FAERS Safety Report 6570023-5 (Version None)
Quarter: 2010Q1

REPORT INFORMATION
  Report Type: 
  Country: None (occurrence: None)
  Receive Date: 20100204
  Receipt Date: 20100129
  Transmission Date: 20100710
  Serious: Yes (Hospitalization, Other)
  Sender: FDA-Public Use
  Company Number: GB-ROCHE-675195

PATIENT
  Sex: Female

DRUGS (3)
  1. XELODA [Suspect]
     Indication: BREAST CANCER
     Dosage: REPORTED AS 14 DAYS
     Route: 048
     Dates: start: 20091118, end: 20091202
  2. GOSERELIN [Concomitant]
     Indication: BREAST CANCER
     Dosage: BEEN RECEIVING FOR YEARS
     Route: 058
  3. ZOLEDRONIC ACID [Concomitant]
     Dosage: BEEN RECEIVING FOR YEARS
     Route: 042

REACTIONS (5)
  - BLINDNESS TRANSIENT [None]
  - DIPLOPIA [None]
  - HEADACHE [None]
  - VISION BLURRED [None]
  - VITH NERVE PARALYSIS [None]
